FAERS Safety Report 23452816 (Version 1)
Quarter: 2024Q1

REPORT INFORMATION
  Report Type: Spontaneous
  Country: US (occurrence: None)
  Receive Date: 20240129
  Receipt Date: 20240129
  Transmission Date: 20240410
  Serious: Yes (Other)
  Sender: FDA-Public Use
  Company Number: None

PATIENT
  Age: 69 Year
  Sex: Female
  Weight: 54.9 kg

DRUGS (7)
  1. SUCRALFATE [Suspect]
     Active Substance: SUCRALFATE
     Indication: Gastric ulcer
     Dosage: OTHER QUANTITY : 2 TEASPOON(S);?FREQUENCY : 4 TIMES A DAY;?
     Route: 048
     Dates: start: 20240125, end: 20240126
  2. PROLIA [Concomitant]
     Active Substance: DENOSUMAB
  3. EFFEXOR XR [Concomitant]
     Active Substance: VENLAFAXINE HYDROCHLORIDE
  4. FLONASE [Concomitant]
     Active Substance: FLUTICASONE PROPIONATE
  5. GasX [Concomitant]
  6. VITAMIN D [Concomitant]
     Active Substance: VITAMIN D NOS
  7. PROBIOTICS NOS [Concomitant]
     Active Substance: PROBIOTICS NOS

REACTIONS (1)
  - Hypersensitivity [None]

NARRATIVE: CASE EVENT DATE: 20240125
